FAERS Safety Report 9222744 (Version 2)
Quarter: 2013Q2

REPORT INFORMATION
  Report Type: Spontaneous
  Country: US (occurrence: US)
  Receive Date: 20130410
  Receipt Date: 20130520
  Transmission Date: 20140414
  Serious: Yes (Other)
  Sender: FDA-Public Use
  Company Number: US-ROCHE-1209432

PATIENT
  Age: 48 Year
  Sex: Male

DRUGS (1)
  1. ACTILYSE [Suspect]
     Indication: PULMONARY EMBOLISM
     Dosage: 10 MG AS BOLUS, 90 MG OVER 2 HOUR
     Route: 042

REACTIONS (2)
  - Chest pain [Recovered/Resolved]
  - Hypotension [Recovered/Resolved]
